FAERS Safety Report 5218416-2 (Version None)
Quarter: 2007Q1

REPORT INFORMATION
  Report Type: 
  Country: None (occurrence: None)
  Receive Date: 20061201
  Receipt Date: 20060616
  Transmission Date: 20070707
  Serious: Yes (Other)
  Sender: FDA-Public Use
  Company Number: PHEH2006US07945

PATIENT
  Age: 33 Year
  Sex: Female

DRUGS (1)
  1. LAMISIL [Suspect]
     Indication: NAIL TINEA
     Dosage: 250 MG, QD, ORAL
     Route: 048
     Dates: start: 20050601

REACTIONS (6)
  - PRURITUS [None]
  - RASH PAPULAR [None]
  - SCAR [None]
  - SKIN DISCOLOURATION [None]
  - SKIN REACTION [None]
  - SKIN WARM [None]
